FAERS Safety Report 17590870 (Version 6)
Quarter: 2020Q3

REPORT INFORMATION
  Report Type: Report from Study
  Country: FR (occurrence: FR)
  Receive Date: 20200327
  Receipt Date: 20200529
  Transmission Date: 20201105
  Serious: Yes (Hospitalization)
  Sender: FDA-Public Use
  Company Number: FR-ROCHE-2569561

PATIENT
  Age: 50 Year
  Sex: Female
  Weight: 57 kg

DRUGS (14)
  1. ATEZOLIZUMAB. [Suspect]
     Active Substance: ATEZOLIZUMAB
     Indication: TRIPLE NEGATIVE BREAST CANCER
     Dosage: DATE OF MOST RECENT DOSE OF ATEZOLIZUMAB (1200 MG) PRIOR TO AE ONSET ON 16/JAN/2020
     Route: 041
     Dates: start: 20190130
  2. LADIRATUZUMAB VEDOTIN. [Suspect]
     Active Substance: LADIRATUZUMAB VEDOTIN
     Indication: TRIPLE NEGATIVE BREAST CANCER
     Dosage: DATE OF MOST RECENT DOSE OF LADIRATUZUMAB VEDOTIN (115 MG) PRIOR TO AE ONSET: 16/JAN/2020
     Route: 042
     Dates: start: 20190130
  3. KETOPROFENE [KETOPROFEN] [Concomitant]
     Active Substance: KETOPROFEN
     Indication: POST LUMBAR PUNCTURE SYNDROME
     Route: 042
     Dates: start: 20200301, end: 20200302
  4. VOLUVEN [HETASTARCH;SODIUM CHLORIDE] [Concomitant]
     Indication: POST LUMBAR PUNCTURE SYNDROME
     Route: 008
     Dates: start: 20200303, end: 20200303
  5. PRIMPERAN [Concomitant]
     Active Substance: METOCLOPRAMIDE HYDROCHLORIDE
     Route: 065
     Dates: start: 20200301, end: 20200302
  6. CAFFEINE. [Concomitant]
     Active Substance: CAFFEINE
     Indication: POST LUMBAR PUNCTURE SYNDROME
     Route: 042
     Dates: start: 20200302, end: 20200303
  7. EFFEXOR [Concomitant]
     Active Substance: VENLAFAXINE HYDROCHLORIDE
     Indication: DEPRESSION
     Route: 048
     Dates: start: 201809
  8. FORLAX [Concomitant]
     Active Substance: POLYETHYLENE GLYCOL 4000
     Indication: CONSTIPATION
     Route: 048
     Dates: start: 20190313
  9. PERFALGAN [Concomitant]
     Active Substance: ACETAMINOPHEN
     Indication: POST LUMBAR PUNCTURE SYNDROME
     Route: 042
     Dates: start: 20200301, end: 20200302
  10. LEVOTHYROXINE. [Concomitant]
     Active Substance: LEVOTHYROXINE
     Indication: HYPOTHYROIDISM
     Route: 048
     Dates: start: 20191205
  11. PRIMPERAN [Concomitant]
     Active Substance: METOCLOPRAMIDE HYDROCHLORIDE
     Indication: VOMITING
     Route: 048
     Dates: start: 20200305
  12. DECAPEPTYL [TRIPTORELIN] [Concomitant]
     Active Substance: TRIPTORELIN
     Indication: CONTRACEPTION
     Route: 030
     Dates: start: 20190130
  13. LAMALINE (ACETAMINOPHEN\CAFFEINE\OPIUM) [Concomitant]
     Active Substance: ACETAMINOPHEN\CAFFEINE\OPIUM
     Indication: POST LUMBAR PUNCTURE SYNDROME
     Dosage: 1 CAP
     Route: 048
     Dates: start: 20200305
  14. PANTOPRAZOLE [Concomitant]
     Active Substance: PANTOPRAZOLE
     Indication: GASTROINTESTINAL DISORDER PROPHYLAXIS
     Route: 065
     Dates: start: 20200301, end: 20200302

REACTIONS (1)
  - Chronic inflammatory demyelinating polyradiculoneuropathy [Not Recovered/Not Resolved]

NARRATIVE: CASE EVENT DATE: 20200116
